FAERS Safety Report 9435964 (Version 1)
Quarter: 2013Q3

REPORT INFORMATION
  Report Type: Spontaneous
  Country: US (occurrence: US)
  Receive Date: 20130801
  Receipt Date: 20130801
  Transmission Date: 20140515
  Serious: No
  Sender: FDA-Public Use
  Company Number: US-009507513-1307USA016977

PATIENT
  Age: 19 Year
  Sex: Female
  Weight: 49.89 kg

DRUGS (2)
  1. IMPLANON [Suspect]
     Indication: CONTRACEPTION
     Dosage: EVERY 3 YEARS 1 ROD
     Route: 059
     Dates: start: 20111006
  2. IMPLANON [Suspect]
     Indication: MENSTRUATION NORMAL

REACTIONS (5)
  - Menstruation irregular [Unknown]
  - Amenorrhoea [Recovered/Resolved]
  - Mood swings [Unknown]
  - Menorrhagia [Unknown]
  - Metrorrhagia [Unknown]
